FAERS Safety Report 12108561 (Version 1)
Quarter: 2016Q1

REPORT INFORMATION
  Report Type: Spontaneous
  Country: US (occurrence: None)
  Receive Date: 20160222
  Receipt Date: 20160222
  Transmission Date: 20160526
  Serious: Yes (Hospitalization)
  Sender: FDA-Public Use
  Company Number: None

PATIENT
  Age: 71 Year
  Sex: Female

DRUGS (1)
  1. RIVAROXABAN [Suspect]
     Active Substance: RIVAROXABAN
     Indication: ATRIAL FIBRILLATION
     Route: 048
     Dates: start: 20151218, end: 20151218

REACTIONS (6)
  - Gastrointestinal disorder [None]
  - Asthenia [None]
  - Haemoglobin decreased [None]
  - Secretion discharge [None]
  - Back pain [None]
  - Vomiting [None]

NARRATIVE: CASE EVENT DATE: 20151218
